FAERS Safety Report 6447228-7 (Version None)
Quarter: 2009Q4

REPORT INFORMATION
  Report Type: 
  Country: None (occurrence: None)
  Receive Date: 20091119
  Receipt Date: 20091106
  Transmission Date: 20100525
  Serious: Yes (Hospitalization, Other)
  Sender: FDA-Public Use
  Company Number: PHHY2009FR48992

PATIENT
  Sex: Male

DRUGS (11)
  1. TEGRETOL [Suspect]
     Indication: BIPOLAR DISORDER
     Dosage: 200 MG, TID
     Route: 048
     Dates: end: 20090901
  2. TEGRETOL [Suspect]
     Dosage: 400 MG, TID
     Route: 048
     Dates: start: 20090901, end: 20090916
  3. TEGRETOL [Suspect]
     Dosage: 200 MG, TID
     Route: 048
  4. SOTALOL HCL [Concomitant]
     Dosage: 40 MG/DAY
  5. TAHOR [Concomitant]
  6. PLAVIX [Concomitant]
  7. KARDEGIC [Concomitant]
  8. RAMIPRIL [Concomitant]
  9. SEROPRAM [Concomitant]
  10. TERCIAN [Concomitant]
  11. LORAZEPAM [Concomitant]

REACTIONS (24)
  - ACCIDENTAL OVERDOSE [None]
  - ACUTE VESTIBULAR SYNDROME [None]
  - ANTICONVULSANT DRUG LEVEL INCREASED [None]
  - ATAXIA [None]
  - BLOOD GLUCOSE INCREASED [None]
  - BLOOD PRESSURE ABNORMAL [None]
  - BLOOD SODIUM INCREASED [None]
  - BODY TEMPERATURE DECREASED [None]
  - CEREBELLAR SYNDROME [None]
  - DIZZINESS [None]
  - DIZZINESS POSTURAL [None]
  - DRUG DISPENSING ERROR [None]
  - DRUG LEVEL INCREASED [None]
  - DYSARTHRIA [None]
  - FALL [None]
  - FEELING ABNORMAL [None]
  - GAIT DISTURBANCE [None]
  - HEART RATE DECREASED [None]
  - NAUSEA [None]
  - NYSTAGMUS [None]
  - TREMOR [None]
  - VERTEBRAL ARTERY STENOSIS [None]
  - VISION BLURRED [None]
  - VOMITING [None]
